FAERS Safety Report 20085751 (Version 1)
Quarter: 2021Q4

REPORT INFORMATION
  Report Type: Spontaneous
  Country: US (occurrence: US)
  Receive Date: 20211118
  Receipt Date: 20211118
  Transmission Date: 20220303
  Serious: No
  Sender: FDA-Public Use
  Company Number: US-PFIZER INC-202101599321

PATIENT
  Age: 84 Year
  Sex: Male

DRUGS (2)
  1. LYRICA [Suspect]
     Active Substance: PREGABALIN
     Dosage: 3 DF
  2. LYRICA [Suspect]
     Active Substance: PREGABALIN
     Dosage: 1 DF

REACTIONS (1)
  - Pain [Unknown]
